FAERS Safety Report 8990794 (Version 2)
Quarter: 2013Q1

REPORT INFORMATION
  Report Type: Spontaneous
  Country: IE (occurrence: IE)
  Receive Date: 20121231
  Receipt Date: 20130124
  Transmission Date: 20140127
  Serious: Yes (Other)
  Sender: FDA-Public Use
  Company Number: IE-MPIJNJ-2012-09190

PATIENT
  Sex: 0

DRUGS (9)
  1. VELCADE [Suspect]
     Indication: PLASMA CELL MYELOMA
     Dosage: 1.3 MG/M2, UNK
     Route: 042
     Dates: start: 20121204
  2. VELCADE [Suspect]
     Dosage: 1.0 MG/M2, UNK
     Route: 058
  3. DEXAMETHASONE [Concomitant]
     Indication: PLASMA CELL MYELOMA
  4. REVLIMID [Concomitant]
     Indication: PLASMA CELL MYELOMA
     Dosage: 10 MG, UNK
  5. VALTREX [Concomitant]
     Indication: PROPHYLAXIS
  6. LANSOPRAZOLE [Concomitant]
     Indication: PROPHYLAXIS
  7. ZANIDIP [Concomitant]
     Indication: PRODUCT USED FOR UNKNOWN INDICATION
  8. NEORECORMON [Concomitant]
     Indication: PRODUCT USED FOR UNKNOWN INDICATION
  9. INNOHEP                            /00889602/ [Concomitant]
     Indication: PROPHYLAXIS

REACTIONS (2)
  - Platelet count decreased [Unknown]
  - Neuropathy peripheral [Unknown]
